FAERS Safety Report 9445391 (Version 1)
Quarter: 2013Q3

REPORT INFORMATION
  Report Type: Spontaneous
  Country: US (occurrence: US)
  Receive Date: 20130807
  Receipt Date: 20130807
  Transmission Date: 20140515
  Serious: No
  Sender: FDA-Public Use
  Company Number: US-PFIZER INC-2013228050

PATIENT
  Age: 43 Year
  Sex: Female
  Weight: 78.91 kg

DRUGS (2)
  1. DILANTIN [Suspect]
     Indication: CONVULSION
     Dosage: 400 MG, 2X/DAY
     Route: 048
     Dates: start: 2010
  2. KEPPRA [Concomitant]
     Dosage: UNK

REACTIONS (3)
  - Incorrect dose administered [Unknown]
  - Bronchitis [Unknown]
  - Nasopharyngitis [Unknown]
